FAERS Safety Report 9701085 (Version 1)
Quarter: 2013Q4

REPORT INFORMATION
  Report Type: Spontaneous
  Country: US (occurrence: None)
  Receive Date: 20131119
  Receipt Date: 20131119
  Transmission Date: 20140711
  Serious: Yes (Death)
  Sender: FDA-Public Use
  Company Number: 2013US002820

PATIENT
  Age: 57 Year
  Sex: Female

DRUGS (1)
  1. ICLUSIG [Suspect]
     Indication: PRODUCT USED FOR UNKNOWN INDICATION
     Route: 048
     Dates: start: 20130510

REACTIONS (5)
  - Leukaemia [None]
  - Cytomegalovirus infection [None]
  - Aspergillus infection [None]
  - Sepsis [None]
  - Pneumonia [None]
